FAERS Safety Report 4426107-0 (Version None)
Quarter: 2004Q3

REPORT INFORMATION
  Report Type: 
  Country: None (occurrence: None)
  Receive Date: 20040811
  Receipt Date: 20040802
  Transmission Date: 20050211
  Serious: Yes (Other)
  Sender: FDA-Public Use
  Company Number: 2004226711CA

PATIENT
  Age: 20 Year
  Sex: Female
  Weight: 61.2 kg

DRUGS (2)
  1. DEPO-PROVERA [Suspect]
     Indication: CONTRACEPTION
     Dosage: 150 MG,  MOST RECENT INJ., INTRAMUSCULAR
     Route: 030
     Dates: start: 20000605, end: 20000605
  2. DEPO-PROVERA [Suspect]
     Indication: CONTRACEPTION
     Dosage: 150 MG,  MOST RECENT INJ., INTRAMUSCULAR
     Route: 030
     Dates: start: 20040605, end: 20040605

REACTIONS (2)
  - EXTRASYSTOLES [None]
  - HEART RATE INCREASED [None]
